FAERS Safety Report 8103615-2 (Version None)
Quarter: 2012Q1

REPORT INFORMATION
  Report Type: 
  Country: None (occurrence: None)
  Receive Date: 20120201
  Receipt Date: 20120116
  Transmission Date: 20120608
  Serious: Yes (Death, Other)
  Sender: FDA-Public Use
  Company Number: AU-ROCHE-1034607

PATIENT

DRUGS (2)
  1. MABTHERA [Suspect]
     Dosage: MAINTENANCE THERAPY
  2. MABTHERA [Suspect]
     Indication: CHRONIC GRAFT VERSUS HOST DISEASE
     Dosage: SINGLE DOSE

REACTIONS (3)
  - SEPSIS [None]
  - NEUTROPENIA [None]
  - THROMBOCYTOPENIA [None]
